FAERS Safety Report 6912472-9 (Version None)
Quarter: 2010Q3

REPORT INFORMATION
  Report Type: 
  Country: None (occurrence: None)
  Receive Date: 20100806
  Receipt Date: 20080602
  Transmission Date: 20110219
  Serious: No
  Sender: FDA-Public Use
  Company Number: US-PFIZER INC-2008047412

PATIENT
  Sex: Female

DRUGS (2)
  1. LOPID [Interacting]
     Indication: BLOOD CHOLESTEROL INCREASED
  2. ACTOS [Suspect]

REACTIONS (2)
  - BLOOD GLUCOSE DECREASED [None]
  - DRUG INTERACTION [None]
